FAERS Safety Report 18171139 (Version 1)
Quarter: 2020Q3

REPORT INFORMATION
  Report Type: Spontaneous
  Country: US (occurrence: US)
  Receive Date: 20200819
  Receipt Date: 20200819
  Transmission Date: 20201103
  Serious: No
  Sender: FDA-Public Use
  Company Number: US-OREXO US, INC.-ORE202001-000007

PATIENT
  Age: 59 Year
  Sex: Female

DRUGS (8)
  1. ASPIRIN. [Concomitant]
     Active Substance: ASPIRIN
     Dosage: LOW DOSE, DAILY
  2. TRAZODONE [Concomitant]
     Active Substance: TRAZODONE HYDROCHLORIDE
     Indication: SLEEP DISORDER
  3. ZUBSOLV [Suspect]
     Active Substance: BUPRENORPHINE HYDROCHLORIDE\NALOXONE HYDROCHLORIDE
     Indication: PAIN
     Dosage: THREE TIMES A DAY
  4. ATORVASTATIN [Concomitant]
     Active Substance: ATORVASTATIN
     Indication: BLOOD CHOLESTEROL
  5. LYRICA [Concomitant]
     Active Substance: PREGABALIN
  6. METAXALONE. [Concomitant]
     Active Substance: METAXALONE
     Indication: MUSCLE SPASMS
  7. METOPROLOL. [Concomitant]
     Active Substance: METOPROLOL
  8. OMEPRAZOLE. [Concomitant]
     Active Substance: OMEPRAZOLE
     Indication: GASTRIC DISORDER

REACTIONS (6)
  - Diplopia [Not Recovered/Not Resolved]
  - Gastric disorder [Not Recovered/Not Resolved]
  - Memory impairment [Not Recovered/Not Resolved]
  - Drug ineffective for unapproved indication [Unknown]
  - Condition aggravated [Not Recovered/Not Resolved]
  - Vision blurred [Not Recovered/Not Resolved]

NARRATIVE: CASE EVENT DATE: 201912
